FAERS Safety Report 8510871-5 (Version None)
Quarter: 2012Q3

REPORT INFORMATION
  Report Type: 
  Country: None (occurrence: None)
  Receive Date: 20120716
  Receipt Date: 20120710
  Transmission Date: 20120928
  Serious: Yes (Other)
  Sender: FDA-Public Use
  Company Number: SE-BAYER-2012-054773

PATIENT
  Age: 18 Year
  Sex: Female

DRUGS (2)
  1. LEVONORGESTREL AND ETHINYL ESTRADIOL [Suspect]
     Dosage: UNK
     Route: 048
  2. MIRENA [Suspect]
     Dosage: 20 ?G/D, CONT
     Route: 015
     Dates: start: 20120518, end: 20120530

REACTIONS (4)
  - ABDOMINAL PAIN [None]
  - GENITAL INFECTION [None]
  - VAGINAL HAEMORRHAGE [None]
  - DISCOMFORT [None]
